FAERS Safety Report 6764579-7 (Version None)
Quarter: 2010Q2

REPORT INFORMATION
  Report Type: 
  Country: None (occurrence: None)
  Receive Date: 20100610
  Receipt Date: 20100527
  Transmission Date: 20101027
  Serious: Yes (Hospitalization)
  Sender: FDA-Public Use
  Company Number: DE-MYLANLABS-2010S1003362

PATIENT
  Age: 74 Year
  Sex: Female
  Weight: 75 kg

DRUGS (12)
  1. MIRTAZAPINE [Suspect]
     Indication: LEUKOENCEPHALOPATHY
     Dosage: DOSIS JE APPLIKATION: 15/30 MG
     Route: 048
     Dates: start: 20091028, end: 20100105
  2. PANTOZOL [Suspect]
     Indication: REFLUX OESOPHAGITIS
     Route: 048
     Dates: start: 20090601
  3. PREDNISOLONE [Suspect]
     Indication: HASHIMOTO'S ENCEPHALOPATHY
     Route: 048
     Dates: start: 20091001
  4. LARIAM [Suspect]
     Indication: LEUKOENCEPHALOPATHY
     Route: 048
     Dates: start: 20091028, end: 20100104
  5. TORSEMIDE [Suspect]
     Indication: RENAL FAILURE CHRONIC
     Route: 048
     Dates: start: 20090601
  6. ISCOVER [Interacting]
     Indication: CORONARY ARTERY DISEASE
     Route: 048
     Dates: start: 20090901
  7. ACETYLSALICYLIC ACID [Concomitant]
     Indication: CORONARY ARTERY DISEASE
     Route: 048
     Dates: start: 20090901
  8. DIGITOXIN [Concomitant]
     Indication: ATRIAL FIBRILLATION
     Route: 048
     Dates: start: 20090601
  9. CALCILAC KT [Concomitant]
     Indication: OSTEOPOROSIS PROPHYLAXIS
     Dosage: 1 DF= 500MG CALCIUM CARBONATE + 400IU COLECALCIFEROL
     Route: 048
  10. SPIRONOLACTONE [Concomitant]
     Indication: HYPERTENSION
     Route: 048
  11. KARVEA [Concomitant]
     Indication: HYPERTENSION
     Route: 048
     Dates: start: 20090601
  12. ACTRAPID [Concomitant]
     Indication: DIABETES MELLITUS
     Dosage: DOSIS JE APPLIKATION: 4/12/8 IU
     Route: 058

REACTIONS (2)
  - LEUKOPENIA [None]
  - PYREXIA [None]
